FAERS Safety Report 17791217 (Version 1)
Quarter: 2020Q2

REPORT INFORMATION
  Report Type: Spontaneous
  Country: US (occurrence: US)
  Receive Date: 20200514
  Receipt Date: 20200514
  Transmission Date: 20200714
  Serious: Yes (Hospitalization)
  Sender: FDA-Public Use
  Company Number: None

PATIENT
  Age: 64 Year
  Sex: Male
  Weight: 78 kg

DRUGS (2)
  1. PIPERACILLIN/TAZOBACTAM [Suspect]
     Active Substance: PIPERACILLIN SODIUM\TAZOBACTAM SODIUM
     Indication: CELLULITIS
     Dosage: ?          OTHER ROUTE:IV?
     Route: 042
     Dates: start: 20200214, end: 20200216
  2. VANCOMYCIN (VANCOMYCIN HCL 100MG/ML INJ) [Suspect]
     Active Substance: VANCOMYCIN HYDROCHLORIDE
     Indication: CELLULITIS
     Dosage: ?          OTHER FREQUENCY:UNKNOWN;OTHER ROUTE:IV?
     Route: 042
     Dates: start: 20200214, end: 20200216

REACTIONS (1)
  - Angioedema [None]

NARRATIVE: CASE EVENT DATE: 20200224
